FAERS Safety Report 5876757-X (Version None)
Quarter: 2008Q3

REPORT INFORMATION
  Report Type: 
  Country: None (occurrence: None)
  Receive Date: 20080909
  Receipt Date: 20080909
  Transmission Date: 20090109
  Serious: Yes (Life-Threatening, Other)
  Sender: FDA-Public Use
  Company Number: None

PATIENT
  Age: 51 Year
  Sex: Female
  Weight: 83.0083 kg

DRUGS (4)
  1. EFFEXOR XR [Suspect]
     Indication: ANXIETY
     Dosage: 1 DAILY PO
     Route: 048
     Dates: start: 20080701, end: 20080827
  2. EFFEXOR XR [Suspect]
     Indication: DEPRESSION
     Dosage: 1 DAILY PO
     Route: 048
     Dates: start: 20080701, end: 20080827
  3. EFFEXOR XR [Suspect]
     Indication: MANIA
     Dosage: 1 DAILY PO
     Route: 048
     Dates: start: 20080701, end: 20080827
  4. EFFEXOR XR [Suspect]
     Dosage: 1 DAILY PO
     Route: 048
     Dates: start: 20080906, end: 20080908

REACTIONS (7)
  - CHEST PAIN [None]
  - DIZZINESS [None]
  - DRUG WITHDRAWAL SYNDROME [None]
  - HYPERHIDROSIS [None]
  - INSOMNIA [None]
  - NAUSEA [None]
  - NIGHTMARE [None]
